FAERS Safety Report 10086961 (Version 3)
Quarter: 2014Q2

REPORT INFORMATION
  Report Type: Report from Study
  Country: US (occurrence: US)
  Receive Date: 20140418
  Receipt Date: 20140610
  Transmission Date: 20141212
  Serious: Yes (Death, Hospitalization)
  Sender: FDA-Public Use
  Company Number: PHEH2013US026743

PATIENT
  Age: 61 Year
  Sex: Male
  Weight: 88.44 kg

DRUGS (17)
  1. SANDOSTATIN LAR DEPOT [Suspect]
     Indication: ACROMEGALY
     Dosage: 20 MG, ONCE MONTH
     Route: 030
     Dates: start: 20101105
  2. SANDOSTATIN LAR DEPOT [Suspect]
     Indication: GIGANTISM
  3. ZETIA [Concomitant]
     Dosage: UNK UKN, UNK
  4. TESTOSTERONE [Concomitant]
     Dosage: UNK UKN, UNK
  5. SERTRALINE [Concomitant]
     Dosage: UNK UKN, UNK
  6. RANITIDINE [Concomitant]
     Dosage: UNK UKN, UNK
  7. PLAVIX [Concomitant]
     Dosage: UNK UKN, UNK
  8. NEXIUM//ESOMEPRAZOLE MAGNESIUM [Concomitant]
     Dosage: UNK UKN, UNK
  9. LIPITOR [Concomitant]
     Dosage: UNK UKN, UNK
  10. LEVOXYL [Concomitant]
     Dosage: UNK UKN, UNK
  11. FEXOFENADINE [Concomitant]
     Dosage: UNK UKN, UNK
  12. PSEUDOEPHEDRINE [Concomitant]
     Dosage: UNK UKN, UNK
  13. CORTEF ACETATE [Concomitant]
     Dosage: UNK UKN, UNK
  14. ANDROGEL [Concomitant]
     Dosage: UNK UKN, UNK
  15. AZITHROMYCIN [Concomitant]
     Dosage: UNK UKN, UNK
  16. AMPHETAMINE [Concomitant]
     Dosage: UNK UKN, UNK
  17. DEXTROAMPHETAMINE [Concomitant]
     Dosage: UNK UKN, UNK

REACTIONS (3)
  - Lymphoma [Fatal]
  - Pneumonia [Unknown]
  - Nausea [Unknown]
